FAERS Safety Report 7010233-6 (Version None)
Quarter: 2010Q3

REPORT INFORMATION
  Report Type: 
  Country: None (occurrence: None)
  Receive Date: 20100923
  Receipt Date: 20100914
  Transmission Date: 20110219
  Serious: Yes (Hospitalization)
  Sender: FDA-Public Use
  Company Number: GXKR2010US09935

PATIENT
  Age: 24 Year
  Sex: Female

DRUGS (2)
  1. AMPICILLIN (NGX) [Suspect]
     Indication: ANTIBIOTIC PROPHYLAXIS
     Dosage: 2 G, Q6H
     Route: 042
  2. ACYCLOVIR SODIUM [Concomitant]

REACTIONS (5)
  - CHILLS [None]
  - DRUG EXPOSURE DURING PREGNANCY [None]
  - JARISCH-HERXHEIMER REACTION [None]
  - PYREXIA [None]
  - TACHYCARDIA [None]
